FAERS Safety Report 6113709-9 (Version None)
Quarter: 2009Q1

REPORT INFORMATION
  Report Type: 
  Country: None (occurrence: None)
  Receive Date: 20090312
  Receipt Date: 20090306
  Transmission Date: 20090719
  Serious: Yes (Hospitalization, Other)
  Sender: FDA-Public Use
  Company Number: US-ELI_LILLY_AND_COMPANY-US200903001674

PATIENT
  Sex: Female
  Weight: 38.549 kg

DRUGS (9)
  1. FORTEO [Suspect]
     Indication: OSTEOPOROSIS
     Dosage: UNK, DAILY (1/D)
  2. FORTEO [Suspect]
     Dosage: UNK, DAILY (1/D)
  3. ARICEPT [Concomitant]
  4. NAMENDA [Concomitant]
  5. EFFEXOR [Concomitant]
  6. CALCIUM [Concomitant]
  7. MULTI-VIT [Concomitant]
  8. OXYCONTIN [Concomitant]
     Dosage: UNK, 2/D
  9. METOPROLOL TARTRATE [Concomitant]

REACTIONS (4)
  - EATING DISORDER [None]
  - HIP FRACTURE [None]
  - HYPOPHAGIA [None]
  - PAIN [None]
